FAERS Safety Report 15462360 (Version 1)
Quarter: 2018Q4

REPORT INFORMATION
  Report Type: Spontaneous
  Country: CN (occurrence: CN)
  Receive Date: 20181004
  Receipt Date: 20181004
  Transmission Date: 20190204
  Serious: Yes (Other)
  Sender: FDA-Public Use
  Company Number: CN-ROCHE-2192294

PATIENT
  Age: 26 Year
  Sex: Male
  Weight: 65 kg

DRUGS (3)
  1. CELLCEPT [Suspect]
     Active Substance: MYCOPHENOLATE MOFETIL\MYCOPHENOLATE MOFETIL HYDROCHLORIDE
     Indication: TRANSPLANT REJECTION
     Dosage: ENTERIC-COATED TABLET
     Route: 048
  2. CELLCEPT [Suspect]
     Active Substance: MYCOPHENOLATE MOFETIL\MYCOPHENOLATE MOFETIL HYDROCHLORIDE
     Indication: TRANSPLANT REJECTION
     Route: 048
     Dates: start: 20180624, end: 20180803
  3. TACROLIMUS. [Concomitant]
     Active Substance: TACROLIMUS
     Indication: TRANSPLANT REJECTION
     Route: 048
     Dates: start: 20180624, end: 20180815

REACTIONS (2)
  - Vomiting [Recovered/Resolved]
  - Eructation [Unknown]

NARRATIVE: CASE EVENT DATE: 20180801
